FAERS Safety Report 26074920 (Version 1)
Quarter: 2025Q4

REPORT INFORMATION
  Report Type: Spontaneous
  Country: EU (occurrence: EU)
  Receive Date: 20251121
  Receipt Date: 20251121
  Transmission Date: 20260117
  Serious: Yes (Life-Threatening, Hospitalization)
  Sender: TEVA
  Company Number: EU-TEVA-213594ISR

PATIENT
  Age: 62 Year
  Sex: Male

DRUGS (10)
  1. FLUCONAZOLE [Suspect]
     Active Substance: FLUCONAZOLE
     Indication: Pyrexia
     Route: 065
     Dates: start: 20080429, end: 20080519
  2. ZINACEF [Concomitant]
     Active Substance: CEFUROXIME SODIUM
     Indication: Pyrexia
     Dosage: DOSE CHANGE AT 5:48 PM ON APRIL 30, 2008
     Route: 030
     Dates: start: 20080430, end: 20080510
  3. ZINACEF [Concomitant]
     Active Substance: CEFUROXIME SODIUM
     Indication: Pyrexia
     Route: 030
     Dates: start: 20080428, end: 20080430
  4. THIAMINE [Concomitant]
     Active Substance: THIAMINE
     Indication: Hypovitaminosis
     Route: 065
     Dates: start: 20080428
  5. PANTOPRAZOLE SODIUM [Suspect]
     Active Substance: PANTOPRAZOLE SODIUM
     Indication: Abdominal pain
     Route: 048
     Dates: start: 20080428, end: 20080507
  6. PANTOPRAZOLE SODIUM [Suspect]
     Active Substance: PANTOPRAZOLE SODIUM
     Indication: Abdominal pain
     Route: 048
     Dates: start: 20080527, end: 20080530
  7. LANSOPRAZOLE [Suspect]
     Active Substance: LANSOPRAZOLE
     Indication: Gastric ulcer
     Route: 048
     Dates: start: 20080507, end: 20080523
  8. CIPROFLOXACIN [Suspect]
     Active Substance: CIPROFLOXACIN
     Indication: Pyrexia
     Route: 065
     Dates: start: 20080430, end: 20080503
  9. MEROPENEM [Suspect]
     Active Substance: MEROPENEM
     Indication: Pyrexia
     Route: 042
     Dates: start: 20080511, end: 20080516
  10. B-COMBIN [Concomitant]
     Indication: Hypovitaminosis
     Dosage: B-COMBIN ^DAK^
     Route: 065

REACTIONS (4)
  - Toxic epidermal necrolysis [Recovered/Resolved]
  - Tremor [Recovered/Resolved]
  - Paraesthesia [Recovered/Resolved]
  - Pain in extremity [Recovered/Resolved]

NARRATIVE: CASE EVENT DATE: 20080525
